FAERS Safety Report 5136569-1 (Version None)
Quarter: 2006Q4

REPORT INFORMATION
  Report Type: 
  Country: None (occurrence: None)
  Receive Date: 20061023
  Receipt Date: 20061009
  Transmission Date: 20070319
  Serious: Yes (Other)
  Sender: FDA-Public Use
  Company Number: 2006111758

PATIENT
  Age: 49 Year
  Sex: Female
  Weight: 55.3388 kg

DRUGS (8)
  1. NEURONTIN [Suspect]
     Indication: NEUROPATHY
     Dosage: 100 MG (100 MG,  1 IN 1 D)
     Dates: start: 20060101, end: 20060201
  2. NEURONTIN [Suspect]
     Indication: PAIN
     Dosage: 100 MG (100 MG,  1 IN 1 D)
     Dates: start: 20060101, end: 20060201
  3. NEURONTIN [Suspect]
     Indication: POST HERPETIC NEURALGIA
     Dosage: 100 MG (100 MG,  1 IN 1 D)
     Dates: start: 20060101, end: 20060201
  4. TRAMADOL HCL [Suspect]
     Indication: MIGRAINE
     Dosage: (ONCE DAILY)
     Dates: start: 20060901
  5. IBUPROFEN [Suspect]
     Indication: PAIN
     Dosage: (800 MG, EVERY FOUR HOURS)
     Dates: start: 20060901, end: 20060901
  6. AMITRIPTYLINE HCL [Suspect]
     Indication: INSOMNIA
  7. AMITRIPTYLINE HCL [Suspect]
     Indication: MIGRAINE
  8. INDERAL LA [Concomitant]

REACTIONS (15)
  - ABNORMAL DREAMS [None]
  - CATARACT [None]
  - DRUG HYPERSENSITIVITY [None]
  - EUPHORIC MOOD [None]
  - EYE PAIN [None]
  - EYE PRURITUS [None]
  - FOOD CRAVING [None]
  - FOOT OPERATION [None]
  - GASTRIC DISORDER [None]
  - HALLUCINATION [None]
  - INAPPROPRIATE SCHEDULE OF DRUG ADMINISTRATION [None]
  - INSOMNIA [None]
  - MIGRAINE [None]
  - THERAPY NON-RESPONDER [None]
  - VOMITING [None]
